FAERS Safety Report 6994481-7 (Version None)
Quarter: 2010Q3

REPORT INFORMATION
  Report Type: 
  Country: None (occurrence: None)
  Receive Date: 20100917
  Receipt Date: 20100907
  Transmission Date: 20110219
  Serious: Yes (Hospitalization, Other)
  Sender: FDA-Public Use
  Company Number: JP-JNJFOC-20100707118

PATIENT
  Sex: Female
  Weight: 51 kg

DRUGS (20)
  1. DUROTEP MT [Suspect]
     Indication: ABDOMINAL PAIN LOWER
     Route: 062
  2. DUROTEP MT [Suspect]
     Route: 062
  3. DUROTEP MT [Suspect]
     Route: 062
  4. DUROTEP MT [Suspect]
     Route: 062
  5. DUROTEP MT [Suspect]
     Route: 062
  6. BLOPRESS [Concomitant]
     Indication: HYPERTENSION
     Route: 048
  7. TOWARAT [Concomitant]
     Indication: HYPERTENSION
     Route: 048
  8. PRAVASTATIN SODIUM [Concomitant]
     Indication: HYPERLIPIDAEMIA
     Route: 048
  9. LOBU [Concomitant]
     Indication: PERIARTHRITIS
     Route: 048
  10. TEPRENONE [Concomitant]
     Indication: PERIARTHRITIS
     Route: 048
  11. TEPRENONE [Concomitant]
     Indication: PROPHYLAXIS
     Route: 048
  12. ZOLOFT [Concomitant]
     Indication: DEPRESSION
     Route: 048
  13. ANAFRANIL [Concomitant]
     Indication: DEPRESSION
     Route: 042
  14. ANAFRANIL [Concomitant]
     Route: 048
  15. ANAFRANIL [Concomitant]
     Route: 048
  16. RIZE [Concomitant]
     Indication: DEPRESSION
     Route: 048
  17. MORPHINE HYDROCHLORIDE [Concomitant]
     Indication: ABDOMINAL PAIN LOWER
     Route: 048
  18. DOGMATYL [Concomitant]
     Indication: DEPRESSION
     Route: 048
  19. GASRICK D [Concomitant]
     Indication: PERIARTHRITIS
     Route: 048
  20. GASRICK D [Concomitant]
     Indication: PROPHYLAXIS
     Route: 048

REACTIONS (7)
  - ASTHENIA [None]
  - DECREASED APPETITE [None]
  - DEPRESSION [None]
  - IRRITABILITY [None]
  - MENTAL STATUS CHANGES [None]
  - PARKINSONISM [None]
  - RESTLESSNESS [None]
